FAERS Safety Report 7493247-1 (Version None)
Quarter: 2011Q2

REPORT INFORMATION
  Report Type: 
  Country: None (occurrence: None)
  Receive Date: 20110520
  Receipt Date: 20110512
  Transmission Date: 20111010
  Serious: Yes (Death, Life-Threatening, Hospitalization, Other)
  Sender: FDA-Public Use
  Company Number: JP-JNJFOC-20110411573

PATIENT
  Sex: Male

DRUGS (18)
  1. NAUZELIN [Suspect]
     Indication: VOMITING
     Route: 065
  2. ADALAT CC [Concomitant]
     Indication: HYPERTENSION
     Route: 048
     Dates: start: 20100409
  3. ALOSITOL [Concomitant]
     Indication: HYPERURICAEMIA
     Route: 048
     Dates: start: 20100409, end: 20110422
  4. ALLEGRA [Concomitant]
     Indication: PRURITUS
     Route: 048
     Dates: end: 20110422
  5. ALLEGRA [Concomitant]
     Indication: HYPERTENSION
     Route: 048
     Dates: end: 20110422
  6. LEVOFLOXACIN [Suspect]
     Route: 048
     Dates: start: 20110401, end: 20110421
  7. LASIX [Concomitant]
     Indication: CARDIAC FAILURE CONGESTIVE
     Route: 048
     Dates: end: 20110422
  8. ACECOL [Concomitant]
     Indication: HYPERTENSION
     Route: 048
     Dates: start: 20100427
  9. ALDOMET [Concomitant]
     Indication: HYPERTENSION
     Route: 048
  10. ALDACTONE [Concomitant]
     Indication: CARDIAC FAILURE CONGESTIVE
     Route: 048
     Dates: start: 20100820, end: 20110422
  11. ADALAT CC [Concomitant]
     Route: 048
  12. LEVOFLOXACIN [Suspect]
     Indication: INTERVERTEBRAL DISCITIS
     Route: 048
     Dates: start: 20110225
  13. OPALMON [Concomitant]
     Indication: VASCULAR INSUFFICIENCY
     Route: 048
     Dates: start: 20110125, end: 20110404
  14. XYLOCAINE [Concomitant]
     Indication: SURGERY
     Route: 058
     Dates: start: 20110126, end: 20110126
  15. DIOVAN [Concomitant]
     Indication: HYPERTENSION
     Route: 048
     Dates: end: 20110422
  16. NAUZELIN [Suspect]
     Indication: NAUSEA
     Route: 065
  17. ZOLPIDEM [Concomitant]
     Indication: INSOMNIA
     Route: 048
     Dates: end: 20110422
  18. DOXAZOSIN MESYLATE [Concomitant]
     Indication: HYPERTENSION
     Route: 048

REACTIONS (9)
  - ASTHENIA [None]
  - PARALYSIS FLACCID [None]
  - NAUSEA [None]
  - RESTLESSNESS [None]
  - VOMITING [None]
  - ALTERED STATE OF CONSCIOUSNESS [None]
  - RESPIRATORY DISORDER [None]
  - DECREASED APPETITE [None]
  - LOGORRHOEA [None]
